FAERS Safety Report 6934421-X (Version None)
Quarter: 2010Q3

REPORT INFORMATION
  Report Type: 
  Country: None (occurrence: None)
  Receive Date: 20100820
  Receipt Date: 20100812
  Transmission Date: 20110219
  Serious: Yes (Death)
  Sender: FDA-Public Use
  Company Number: B0661898A

PATIENT
  Sex: Male

DRUGS (1)
  1. NELARABINE [Suspect]
     Route: 042

REACTIONS (2)
  - DEATH [None]
  - MULTI-ORGAN FAILURE [None]
